FAERS Safety Report 4982608-8 (Version None)
Quarter: 2006Q2

REPORT INFORMATION
  Report Type: 
  Country: None (occurrence: None)
  Receive Date: 20060420
  Receipt Date: 20060404
  Transmission Date: 20061013
  Serious: Yes (Hospitalization, Other)
  Sender: FDA-Public Use
  Company Number: US-2006-002176

PATIENT
  Age: 57 Year
  Sex: Female
  Weight: 63.4 kg

DRUGS (22)
  1. BETASERON [Suspect]
     Indication: RELAPSING-REMITTING MULTIPLE SCLEROSIS
     Dosage: 8 MIU, EVERY 2D, SUBCUTANEOUS
     Route: 058
     Dates: start: 19950629, end: 20000315
  2. IMMUNE GLOBULIN INTRAVENOUS (HUMAN) [Concomitant]
  3. PREVACID [Concomitant]
  4. BUPROPION HCL [Concomitant]
  5. LEVOTHYROXINE SODIUM [Concomitant]
  6. SINGULAIR [Concomitant]
  7. POTASSIUM CHLORIDE [Concomitant]
  8. TRAZODONE HCL [Concomitant]
  9. ADVAIR DISKUS (SALMETEROL XINAFOATE, FLUTICASONE PROPIONATE) [Concomitant]
  10. PHENERGAN (PROMETHAZINE HYDROCHLORIDE) [Concomitant]
  11. XANAX [Concomitant]
  12. ATIVAN [Concomitant]
  13. KYTRIL [Concomitant]
  14. ZOFRAN [Concomitant]
  15. PROCRIT [Concomitant]
  16. MAGNESIUM (MAGNESIUM) [Concomitant]
  17. ALLEGRA [Concomitant]
  18. MULTIVITAMINS (PANTHENOL RETINOL) [Concomitant]
  19. PEPTO-BISMOL (BISMUTH SUBSALICYLATE) [Concomitant]
  20. ADVIL [Concomitant]
  21. TYLENOL (CAPLET) [Concomitant]
  22. ADVIL COLD + SINUS (PSEUDOEPHEDRINE HYDROCHLORIDE) [Concomitant]

REACTIONS (15)
  - ENTEROCOCCAL INFECTION [None]
  - FEBRILE NEUTROPENIA [None]
  - FULL BLOOD COUNT ABNORMAL [None]
  - HEADACHE [None]
  - INFLUENZA LIKE ILLNESS [None]
  - INJECTION SITE RASH [None]
  - INJECTION SITE REACTION [None]
  - KIDNEY INFECTION [None]
  - NAUSEA [None]
  - PAIN [None]
  - PSEUDOMONAS INFECTION [None]
  - RED BLOOD CELL COUNT DECREASED [None]
  - URINARY TRACT INFECTION [None]
  - VOMITING [None]
  - WHITE BLOOD CELL COUNT DECREASED [None]
